FAERS Safety Report 24984955 (Version 2)
Quarter: 2025Q3

REPORT INFORMATION
  Report Type: Spontaneous
  Country: CN (occurrence: CN)
  Receive Date: 20250219
  Receipt Date: 20250803
  Transmission Date: 20251020
  Serious: Yes (Other)
  Sender: ALEXION PHARMACEUTICALS
  Company Number: CN-ASTRAZENECA-202502CHN011040CN

PATIENT
  Age: 61 Year
  Sex: Male
  Weight: 75 kg

DRUGS (2)
  1. CRESTOR [Suspect]
     Active Substance: ROSUVASTATIN CALCIUM
     Indication: Myocardial infarction
     Dosage: 10 MILLIGRAM, BID
     Dates: start: 20250207, end: 20250207
  2. HERBALS\HOMEOPATHICS [Suspect]
     Active Substance: HERBALS\HOMEOPATHICS
     Indication: Myocardial infarction
     Dosage: 0.52 GRAM, TID
     Dates: start: 20250207, end: 20250207

REACTIONS (3)
  - Rash [Recovering/Resolving]
  - Flushing [Recovering/Resolving]
  - Pruritus [Recovering/Resolving]

NARRATIVE: CASE EVENT DATE: 20250207
